FAERS Safety Report 4420565-3 (Version None)
Quarter: 2004Q3

REPORT INFORMATION
  Report Type: 
  Country: None (occurrence: None)
  Receive Date: 20040805
  Receipt Date: 20040805
  Transmission Date: 20050211
  Serious: Yes (Other)
  Sender: FDA-Public Use
  Company Number: None

PATIENT
  Sex: Male
  Weight: 96.6 kg

DRUGS (1)
  1. THALIDOMIDE  CELGENE [Suspect]
     Indication: MULTIPLE MYELOMA
     Dosage: 100 MG QD ORAL
     Route: 048
     Dates: start: 20040322, end: 20040719

REACTIONS (1)
  - BLOOD THYROID STIMULATING HORMONE INCREASED [None]
